FAERS Safety Report 18718463 (Version 2)
Quarter: 2021Q1

REPORT INFORMATION
  Report Type: Report from Study
  Country: US (occurrence: US)
  Receive Date: 20210108
  Receipt Date: 20210108
  Transmission Date: 20210419
  Serious: Yes (Other)
  Sender: FDA-Public Use
  Company Number: US-REGENERON PHARMACEUTICALS, INC.-2020-97696

PATIENT

DRUGS (4)
  1. Z?PACK [Concomitant]
     Active Substance: AZITHROMYCIN DIHYDRATE
     Indication: JOINT SWELLING
  2. CASIRIVIMAB AND IMDEVIMAB [Suspect]
     Active Substance: CASIRIVIMAB\IMDEVIMAB
     Indication: COVID-19
     Dosage: UNK
     Route: 065
     Dates: start: 20201221, end: 20201221
  3. Z?PACK [Concomitant]
     Active Substance: AZITHROMYCIN DIHYDRATE
     Indication: PERIPHERAL SWELLING
     Dosage: UNK
     Route: 065
     Dates: start: 20201215, end: 20201220
  4. STEROIDS PACK [Concomitant]
     Indication: TESTICULAR SWELLING
     Dosage: UNK
     Dates: start: 20191215

REACTIONS (6)
  - Nasal disorder [Unknown]
  - Sinusitis [Unknown]
  - Pyrexia [Recovered/Resolved]
  - Chills [Recovered/Resolved]
  - Pain [Recovered/Resolved]
  - Epistaxis [Unknown]

NARRATIVE: CASE EVENT DATE: 202012
